FAERS Safety Report 4976679-2 (Version None)
Quarter: 2006Q2

REPORT INFORMATION
  Report Type: 
  Country: None (occurrence: None)
  Receive Date: 20060412
  Receipt Date: 20060403
  Transmission Date: 20061013
  Serious: No
  Sender: FDA-Public Use
  Company Number: S06-USA-01167-01

PATIENT
  Age: 31 Year
  Sex: Female
  Weight: 103.9191 kg

DRUGS (7)
  1. CERVIDIL [Suspect]
     Indication: LABOUR INDUCTION
     Dates: start: 20060315, end: 20060316
  2. HYDRALAZINE [Concomitant]
  3. LABETALOL HCL [Concomitant]
  4. PREVACID [Concomitant]
  5. METHYLDOPA [Concomitant]
  6. NIFEDIPINE [Concomitant]
  7. NIFEDIPINE CC (NIFEDIPINE) [Concomitant]

REACTIONS (4)
  - CAESAREAN SECTION [None]
  - DRUG EXPOSURE DURING PREGNANCY [None]
  - FOETAL DISORDER [None]
  - IRRITABILITY [None]
